FAERS Safety Report 7632235-9 (Version None)
Quarter: 2011Q3

REPORT INFORMATION
  Report Type: 
  Country: None (occurrence: None)
  Receive Date: 20110725
  Receipt Date: 20100806
  Transmission Date: 20111222
  Serious: No
  Sender: FDA-Public Use
  Company Number: US-BRISTOL-MYERS SQUIBB COMPANY-15170467

PATIENT

DRUGS (1)
  1. COUMADIN [Suspect]
     Dosage: 1DF=5MG 5 DAYS A WEEK/7.5MG 2 DAYS A WEEK;7.5MG 7 DAYS A WEEK;INCR. 10MG 2 DAYS+7.5MG 5 DAYS A WEEK
     Dates: start: 20100301

REACTIONS (1)
  - DRUG INEFFECTIVE [None]
